FAERS Safety Report 10945280 (Version 2)
Quarter: 2015Q2

REPORT INFORMATION
  Report Type: Spontaneous
  Country: US (occurrence: US)
  Receive Date: 20150323
  Receipt Date: 20150421
  Transmission Date: 20150821
  Serious: Yes (Other)
  Sender: FDA-Public Use
  Company Number: US-AMGEN-USASP2015025163

PATIENT
  Age: 73 Year
  Sex: Male

DRUGS (2)
  1. PRILOSEC [Concomitant]
     Active Substance: OMEPRAZOLE MAGNESIUM
  2. PROLIA [Suspect]
     Active Substance: DENOSUMAB
     Indication: OSTEOPOROSIS
     Dosage: 60 MG, Q6MO
     Route: 058
     Dates: start: 20141217

REACTIONS (11)
  - Chronic gastritis [Unknown]
  - Diverticulum [Unknown]
  - Gastrointestinal arteriovenous malformation [Unknown]
  - Hypertension [Unknown]
  - Gastrointestinal haemorrhage [Unknown]
  - Rectal haemorrhage [Unknown]
  - Gastritis erosive [Recovered/Resolved]
  - Gastrointestinal mucosal disorder [Unknown]
  - Barrett^s oesophagus [Unknown]
  - Melaena [Recovered/Resolved]
  - Post polio syndrome [Unknown]

NARRATIVE: CASE EVENT DATE: 20150304
